FAERS Safety Report 13342280 (Version 4)
Quarter: 2017Q3

REPORT INFORMATION
  Report Type: Spontaneous
  Country: US (occurrence: US)
  Receive Date: 20170316
  Receipt Date: 20170706
  Transmission Date: 20171127
  Serious: Yes (Other)
  Sender: FDA-Public Use
  Company Number: US-VERTEX PHARMACEUTICALS-2017-001414

PATIENT
  Age: 8 Year
  Sex: Male
  Weight: 35 kg

DRUGS (23)
  1. ORKAMBI [Suspect]
     Active Substance: IVACAFTOR\LUMACAFTOR
     Dosage: 100-125 MG
     Route: 048
     Dates: start: 2017
  2. CREON [Concomitant]
     Active Substance: PANCRELIPASE AMYLASE\PANCRELIPASE LIPASE\PANCRELIPASE PROTEASE
  3. VITAMIN D [Concomitant]
     Active Substance: CHOLECALCIFEROL
  4. DUOCAL [Concomitant]
  5. AZITHROMYCIN ANHYDROUS. [Concomitant]
     Active Substance: AZITHROMYCIN ANHYDROUS
  6. DEKAS PLUS [Concomitant]
  7. XOPENEX [Concomitant]
     Active Substance: LEVALBUTEROL HYDROCHLORIDE
  8. MIRALAX [Concomitant]
     Active Substance: POLYETHYLENE GLYCOL 3350
  9. ACETYL CYSTEINE [Concomitant]
  10. NASONEX [Concomitant]
     Active Substance: MOMETASONE FUROATE
  11. QVAR [Concomitant]
     Active Substance: BECLOMETHASONE DIPROPIONATE
  12. HYPERSAL [Concomitant]
  13. SINGULAIR [Concomitant]
     Active Substance: MONTELUKAST SODIUM
  14. ORKAMBI [Suspect]
     Active Substance: IVACAFTOR\LUMACAFTOR
     Indication: CYSTIC FIBROSIS
     Dosage: 2 DF (100-125MG EACH), BID
     Route: 048
     Dates: start: 20170302, end: 201703
  15. PULMOZYME [Concomitant]
     Active Substance: DORNASE ALFA
  16. CLARITIN [Concomitant]
     Active Substance: LORATADINE
  17. LEVALBUTEROL. [Concomitant]
     Active Substance: LEVALBUTEROL
  18. BETHKIS [Concomitant]
     Active Substance: TOBRAMYCIN
  19. MUCINEX [Concomitant]
     Active Substance: GUAIFENESIN
  20. NEXIUM [Concomitant]
     Active Substance: ESOMEPRAZOLE MAGNESIUM
  21. MONTELUKAST [Concomitant]
     Active Substance: MONTELUKAST SODIUM
  22. ACAPELLA [Concomitant]
  23. PERIACTIN [Concomitant]
     Active Substance: CYPROHEPTADINE HYDROCHLORIDE

REACTIONS (2)
  - Rash papular [Recovered/Resolved]
  - Product quality issue [Unknown]

NARRATIVE: CASE EVENT DATE: 20170310
